FAERS Safety Report 15344248 (Version 2)
Quarter: 2018Q3

REPORT INFORMATION
  Report Type: Spontaneous
  Country: US (occurrence: US)
  Receive Date: 20180903
  Receipt Date: 20180907
  Transmission Date: 20181010
  Serious: No
  Sender: FDA-Public Use
  Company Number: US-PFIZER INC-2018353842

PATIENT
  Age: 53 Year
  Sex: Female
  Weight: 109 kg

DRUGS (3)
  1. LYRICA [Suspect]
     Active Substance: PREGABALIN
     Dosage: 150 MG, 1X/DAY (TWO 75MG CAPSULES)
     Route: 048
  2. LYRICA [Suspect]
     Active Substance: PREGABALIN
     Indication: FIBROMYALGIA
     Dosage: 300 MG, DAILY (75 MG, ONE CAPSULE IN THE MORNING AND THREE CAPSULES AT BEDTIME)
     Route: 048
  3. LYRICA [Suspect]
     Active Substance: PREGABALIN
     Dosage: 300 MG, DAILY (75 MG, ONE CAPSULE IN THE MORNING AND THREE CAPSULES AT BEDTIME)
     Route: 048

REACTIONS (3)
  - Pain [Unknown]
  - Malaise [Unknown]
  - Intentional product misuse [Unknown]
